FAERS Safety Report 14730200 (Version 2)
Quarter: 2018Q2

REPORT INFORMATION
  Report Type: Spontaneous
  Country: US (occurrence: US)
  Receive Date: 20180406
  Receipt Date: 20180412
  Transmission Date: 20180711
  Serious: No
  Sender: FDA-Public Use
  Company Number: US-PFIZER INC-2018139868

PATIENT
  Age: 64 Year
  Sex: Female
  Weight: 79.83 kg

DRUGS (1)
  1. ZOLOFT [Suspect]
     Active Substance: SERTRALINE HYDROCHLORIDE
     Indication: NEUROTRANSMITTER LEVEL ALTERED
     Dosage: 12.5 MG TABLET AT HALF TABLET ONCE DAILY
     Route: 048
     Dates: start: 201803, end: 201803

REACTIONS (3)
  - Fatigue [Unknown]
  - Nervous system disorder [Unknown]
  - Energy increased [Unknown]
